FAERS Safety Report 24992227 (Version 1)
Quarter: 2025Q1

REPORT INFORMATION
  Report Type: Other
  Country: ES (occurrence: ES)
  Receive Date: 20250220
  Receipt Date: 20250220
  Transmission Date: 20250409
  Serious: Yes (Death, Life-Threatening, Hospitalization, Disabling, Other)
  Sender: B BRAUN
  Company Number: ES-B.Braun Medical Inc.-2171536

PATIENT
  Age: 75 Year
  Sex: Male
  Weight: 86.4 kg

DRUGS (29)
  1. ACETAMINOPHEN [Suspect]
     Active Substance: ACETAMINOPHEN
     Dates: start: 20200811
  2. MIDAZOLAM [Suspect]
     Active Substance: MIDAZOLAM
  3. HALOPERIDOL [Concomitant]
     Active Substance: HALOPERIDOL
  4. DEXAMETHASONE [Concomitant]
     Active Substance: DEXAMETHASONE
  5. CEFTRIAXONE [Concomitant]
     Active Substance: CEFTRIAXONE
  6. CAPTOPRIL [Concomitant]
     Active Substance: CAPTOPRIL
  7. BEMIPARIN [Concomitant]
     Active Substance: BEMIPARIN
  8. AMLODIPINE [Concomitant]
     Active Substance: AMLODIPINE BESYLATE
  9. ACETYLCYSTEINE [Concomitant]
     Active Substance: ACETYLCYSTEINE
  10. QUETIAPINE [Concomitant]
     Active Substance: QUETIAPINE
  11. PARAFFIN [Concomitant]
     Active Substance: PARAFFIN
  12. MELATONIN [Concomitant]
     Active Substance: MELATONIN
  13. INSULIN PORK\INSULIN PURIFIED PORK [Concomitant]
     Active Substance: INSULIN PORK\INSULIN PURIFIED PORK
  14. INSULIN NOS [Concomitant]
     Active Substance: INSULIN NOS
  15. OMEPRAZOLE [Suspect]
     Active Substance: OMEPRAZOLE
  16. METHOTREXATE [Suspect]
     Active Substance: METHOTREXATE
  17. INSULIN GLARGINE [Suspect]
     Active Substance: INSULIN GLARGINE
  18. HYDROCORTISONE [Suspect]
     Active Substance: HYDROCORTISONE
  19. FUROSEMIDE [Suspect]
     Active Substance: FUROSEMIDE
  20. FENTANYL [Suspect]
     Active Substance: FENTANYL
  21. ENOXAPARIN SODIUM [Suspect]
     Active Substance: ENOXAPARIN SODIUM
  22. CISATRACURIUM BESYLATE [Suspect]
     Active Substance: CISATRACURIUM BESYLATE
  23. AMIODARONE [Suspect]
     Active Substance: AMIODARONE
  24. ALBUMIN HUMAN [Suspect]
     Active Substance: ALBUMIN HUMAN
  25. PLASMA-LYTE 148 [Suspect]
     Active Substance: MAGNESIUM CHLORIDE\POTASSIUM CHLORIDE\SODIUM ACETATE\SODIUM CHLORIDE\SODIUM GLUCONATE
  26. PROPOFOL [Suspect]
     Active Substance: PROPOFOL
  27. ELECTROLYTES NOS [Suspect]
     Active Substance: ELECTROLYTES NOS
  28. MAGNESIUM [Suspect]
     Active Substance: MAGNESIUM
  29. CALCIUM GLUCONATE [Suspect]
     Active Substance: CALCIUM GLUCONATE

REACTIONS (4)
  - Hypokalaemia [Fatal]
  - Klebsiella infection [Fatal]
  - Hypoxia [Fatal]
  - Cyanosis [Fatal]
